FAERS Safety Report 4602099-6 (Version None)
Quarter: 2005Q1

REPORT INFORMATION
  Report Type: 
  Country: None (occurrence: None)
  Receive Date: 20050308
  Receipt Date: 20050302
  Transmission Date: 20050727
  Serious: Yes (Life-Threatening, Disabling)
  Sender: FDA-Public Use
  Company Number: US-MERCK-0503USA00336

PATIENT
  Age: 86 Year
  Sex: Female

DRUGS (6)
  1. VIOXX [Suspect]
     Indication: ARTHRITIS
     Route: 048
     Dates: start: 20030101, end: 20040930
  2. PREVACID [Concomitant]
     Route: 065
  3. ATENOLOL MSD [Concomitant]
     Route: 065
  4. MIACALCIN [Concomitant]
     Route: 065
  5. FOSAMAX [Concomitant]
     Route: 065
  6. CELEXA [Concomitant]
     Route: 065

REACTIONS (3)
  - BLOOD PRESSURE INCREASED [None]
  - DIFFICULTY IN WALKING [None]
  - VERTIGO [None]
